FAERS Safety Report 13578253 (Version 5)
Quarter: 2017Q3

REPORT INFORMATION
  Report Type: Spontaneous
  Country: JP (occurrence: JP)
  Receive Date: 20170524
  Receipt Date: 20170901
  Transmission Date: 20171127
  Serious: Yes (Death, Hospitalization)
  Sender: FDA-Public Use
  Company Number: JP-ABBVIE-17K-087-1985666-00

PATIENT
  Age: 85 Year
  Sex: Male
  Weight: 50 kg

DRUGS (17)
  1. FLUDROXYCORTIDE [Concomitant]
     Indication: PROPHYLAXIS
  2. MAXACALCITOL [Concomitant]
     Active Substance: MAXACALCITOL
     Indication: INFLAMMATION
  3. WHITE PETROLATUM [Concomitant]
     Active Substance: PETROLATUM
     Indication: DRY SKIN PROPHYLAXIS
     Dosage: TWICE TO 3 TIMES/DAY
     Route: 061
     Dates: start: 20121107
  4. HUMIRA [Suspect]
     Active Substance: ADALIMUMAB
     Dosage: 40 MG ONCE EVERY FEW WEEKS
     Route: 058
     Dates: start: 20130823, end: 20140117
  5. OLOPATADINE HYDROCHLORIDE. [Concomitant]
     Active Substance: OLOPATADINE HYDROCHLORIDE
     Indication: PRURITUS
     Route: 048
     Dates: start: 20120330
  6. FLUDROXYCORTIDE [Concomitant]
     Indication: INFLAMMATION
     Route: 062
     Dates: end: 20110330
  7. HEPARINOID [Concomitant]
     Active Substance: CHONDROITIN SULFATE (BOVINE)
     Indication: DRY SKIN PROPHYLAXIS
     Dosage: ONCE TO TWICE/DAY
     Route: 061
     Dates: start: 20110930
  8. HUMIRA [Suspect]
     Active Substance: ADALIMUMAB
     Route: 058
     Dates: end: 20150107
  9. FLUDROXYCORTIDE [Concomitant]
     Indication: SKIN FISSURES
  10. MAXACALCITOL [Concomitant]
     Active Substance: MAXACALCITOL
     Indication: HYPERKERATOSIS
     Dosage: ONCE TO TWICE/DAY
     Route: 061
     Dates: start: 20110330
  11. AZULENE [Concomitant]
     Active Substance: AZULENE
     Indication: PROPHYLAXIS
  12. HUMIRA [Suspect]
     Active Substance: ADALIMUMAB
     Indication: ERYTHRODERMIC PSORIASIS
     Dosage: 40 MG ONCE EVERY FEW WEEKS
     Route: 058
     Dates: end: 20130208
  13. HUMIRA [Suspect]
     Active Substance: ADALIMUMAB
     Dosage: 80 MG ONCE EVERY FEW WEEKS
     Route: 058
     Dates: start: 20130222, end: 20130809
  14. BETAMETHASONE BUTYRATE PROPIONATE [Concomitant]
     Active Substance: BETAMETHASONE BUTYRATE PROPIONATE
     Indication: INFLAMMATION
     Dosage: ONCE TO TWICE DAILY
     Route: 061
     Dates: start: 20110506
  15. AZULENE [Concomitant]
     Active Substance: AZULENE
     Indication: INFLAMMATION
     Route: 061
     Dates: start: 20110330
  16. EPINASTINE HYDROCHLORIDE. [Concomitant]
     Active Substance: EPINASTINE HYDROCHLORIDE
     Indication: PRURITUS
     Dosage: IN THE MORNING
     Route: 048
     Dates: end: 20120309
  17. CROTAMITON [Concomitant]
     Active Substance: CROTAMITON
     Indication: PRURITUS
     Dosage: TWICE TO 3 TIMES/DAY
     Route: 061
     Dates: start: 20130531

REACTIONS (18)
  - Dermatomyositis [Fatal]
  - Cachexia [Fatal]
  - Blood creatine phosphokinase MB increased [Unknown]
  - Hypophagia [Fatal]
  - Collagen disorder [Unknown]
  - Nervous system disorder [Unknown]
  - Rash [Unknown]
  - Respiratory muscle weakness [Fatal]
  - Blood creatine phosphokinase increased [Unknown]
  - Pseudomonas test positive [Unknown]
  - Klebsiella test positive [Unknown]
  - Aspartate aminotransferase increased [Unknown]
  - Dysphagia [Unknown]
  - Organ failure [Fatal]
  - Asthenia [Unknown]
  - Fungal infection [Unknown]
  - Candida infection [Unknown]
  - Alanine aminotransferase increased [Unknown]

NARRATIVE: CASE EVENT DATE: 20150107
